FAERS Safety Report 8785792 (Version 1)
Quarter: 2012Q4

REPORT INFORMATION
  Report Type: 
  Country: FR (occurrence: FR)
  Receive Date: 20120914
  Receipt Date: 20120914
  Transmission Date: 20130627
  Serious: Yes (Other)
  Sender: FDA-Public Use
  Company Number: FR-GLAXOSMITHKLINE-B0827585A

PATIENT
  Age: 73 Year
  Sex: Male

DRUGS (12)
  1. DEROXAT [Suspect]
     Indication: PRODUCT USED FOR UNKNOWN INDICATION
     Dosage: 20MG Per day
     Route: 048
     Dates: start: 201206, end: 20120828
  2. LOXEN LP [Suspect]
     Indication: PRODUCT USED FOR UNKNOWN INDICATION
     Route: 048
     Dates: start: 201203, end: 20120828
  3. EZETROL [Concomitant]
     Route: 065
  4. LESCOL [Concomitant]
     Route: 065
  5. OMACOR [Concomitant]
     Route: 065
  6. CLOPIDOGREL [Concomitant]
     Route: 065
  7. MODURETIC [Concomitant]
     Route: 065
  8. OMIX [Concomitant]
     Route: 065
  9. TADENAN [Concomitant]
     Route: 065
  10. FINASTERIDE [Concomitant]
     Route: 065
  11. DONORMYL [Concomitant]
     Route: 065
  12. TILDIEM [Concomitant]
     Route: 065
     Dates: end: 20120828

REACTIONS (2)
  - Parkinsonian rest tremor [Not Recovered/Not Resolved]
  - Cogwheel rigidity [Unknown]
